FAERS Safety Report 18955057 (Version 3)
Quarter: 2021Q3

REPORT INFORMATION
  Report Type: Spontaneous
  Country: GB (occurrence: GB)
  Receive Date: 20210301
  Receipt Date: 20210810
  Transmission Date: 20211014
  Serious: Yes (Hospitalization, Other)
  Sender: FDA-Public Use
  Company Number: GB-SA-2021SA052241

PATIENT
  Age: 8 Year
  Sex: Female
  Weight: 23.35 kg

DRUGS (22)
  1. DEXAMETHASONE. [Suspect]
     Active Substance: DEXAMETHASONE
     Dosage: 3.5 MG, BID
     Route: 048
     Dates: start: 20200210
  2. AFINITOR [Suspect]
     Active Substance: EVEROLIMUS
     Dosage: 2.5 MILLIGRAM (5 MG MONDAY TO SATURDAY AND 2.5 MG SUNDAY)
     Route: 048
     Dates: start: 20190717
  3. AFINITOR [Suspect]
     Active Substance: EVEROLIMUS
     Dosage: 5 MG MONDAY/WEDNESDAY/FRIDAY AND 2.5 MG
     Dates: start: 20200212
  4. AFINITOR [Suspect]
     Active Substance: EVEROLIMUS
     Dosage: 5 MILLIGRAM, MONDAY/WEDNESDAY/FRIDAY AND 2.5 MG TUESDAY/THURSDAY/SATURDAY/SUNDAY)
     Route: 048
     Dates: start: 20200213
  5. DEXAMETHASONE. [Suspect]
     Active Substance: DEXAMETHASONE
     Dosage: 1.6 MG, QD
     Route: 048
     Dates: start: 20200215, end: 20200221
  6. VANDETANIB. [Suspect]
     Active Substance: VANDETANIB
     Dosage: 100 MG, QOD
     Route: 048
     Dates: start: 20191018, end: 20200207
  7. LANSOPRAZOLE. [Concomitant]
     Active Substance: LANSOPRAZOLE
     Indication: PRODUCT USED FOR UNKNOWN INDICATION
     Dosage: UNK
     Route: 065
  8. LOPERAMIDE [Concomitant]
     Active Substance: LOPERAMIDE
     Indication: PROPHYLAXIS
     Dosage: 2 MG, 1 CAPSULE UP TO 4 TIMES A DAY
     Route: 065
  9. EVEROLIMUS. [Suspect]
     Active Substance: EVEROLIMUS
     Dosage: 2.5 MG, QW (SUNDAY)
     Route: 048
     Dates: start: 201907
  10. EVEROLIMUS. [Suspect]
     Active Substance: EVEROLIMUS
     Dosage: 2.5 MG TUESDAY/ THURSDAY/SATURDAY/ SUNDAY
     Route: 048
     Dates: end: 20200207
  11. DEXAMETHASONE. [Suspect]
     Active Substance: DEXAMETHASONE
     Indication: PRODUCT USED FOR UNKNOWN INDICATION
     Dosage: 4.6 MG
     Route: 048
     Dates: start: 20200207, end: 20200221
  12. RANITIDINE. [Suspect]
     Active Substance: RANITIDINE
     Indication: GASTROOESOPHAGEAL REFLUX DISEASE
     Dosage: UNK, BID
     Route: 048
  13. AFINITOR [Suspect]
     Active Substance: EVEROLIMUS
     Dosage: 5 MG MONDAY/WEDNESDAY/FRIDAY AND 2.5 MG
     Dates: start: 20191001, end: 20191014
  14. PARACETAMOL [Concomitant]
     Active Substance: ACETAMINOPHEN
     Indication: PRODUCT USED FOR UNKNOWN INDICATION
     Dosage: UNK, PRN
     Route: 048
  15. VANDETANIB. [Suspect]
     Active Substance: VANDETANIB
     Dosage: 54 MG/M2, QD
     Route: 048
     Dates: start: 20200212, end: 20200302
  16. VANDETANIB. [Suspect]
     Active Substance: VANDETANIB
     Indication: BRAIN STEM GLIOMA
     Dosage: 65 MG/M2, QD
     Route: 048
     Dates: start: 20191009, end: 20191014
  17. COTRIMOXAZOLE [Concomitant]
     Active Substance: SULFAMETHOXAZOLE\TRIMETHOPRIM
     Indication: PRODUCT USED FOR UNKNOWN INDICATION
     Dosage: 360 MG, BID (7.5 ML) ON SATURDAYS AND SUNDAYS
     Route: 048
  18. EVEROLIMUS. [Suspect]
     Active Substance: EVEROLIMUS
     Indication: BRAIN STEM GLIOMA
     Dosage: 5 MG, QD (MONDAYTO SATURDAY)
     Route: 048
     Dates: start: 20190717
  19. EVEROLIMUS. [Suspect]
     Active Substance: EVEROLIMUS
     Dosage: 5 MG MONDAY/WEDNESDAY/FRIDAY
     Route: 048
     Dates: start: 20200212
  20. DEXAMETHASONE. [Suspect]
     Active Substance: DEXAMETHASONE
     Dosage: 3.5 MG, QD
     Route: 048
     Dates: start: 20200212
  21. AFINITOR [Suspect]
     Active Substance: EVEROLIMUS
     Dosage: 2.5 MILLIGRAM (5 MG MONDAY/WEDNESDAY/FRIDAY AND 2.5 MG TUESDAY/THURSDAY/SATURDAY/SUNDAY)
     Route: 048
     Dates: start: 20190718, end: 20200207
  22. COTRIMOXAZOLE [Concomitant]
     Active Substance: SULFAMETHOXAZOLE\TRIMETHOPRIM
     Dosage: 4 MILLIGRAM, BID(VARIABLE; 4MG BD WEANED TO 0.5MGUNK
     Dates: start: 20191101, end: 20200221

REACTIONS (28)
  - Ataxia [Not Recovered/Not Resolved]
  - Flatulence [Recovered/Resolved]
  - Malignant neoplasm progression [Unknown]
  - Electrocardiogram QT prolonged [Recovered/Resolved]
  - Blood creatinine increased [Recovered/Resolved]
  - Blood triglycerides increased [Unknown]
  - Blood cholesterol increased [Not Recovered/Not Resolved]
  - Gastrooesophageal reflux disease [Recovered/Resolved]
  - Disease progression [Unknown]
  - Abdominal distension [Recovered/Resolved]
  - Ocular hyperaemia [Recovered/Resolved]
  - Ataxia [Recovered/Resolved]
  - Hemiparesis [Recovered/Resolved]
  - Hypophagia [Not Recovered/Not Resolved]
  - Neutrophil count decreased [Recovered/Resolved]
  - Neutrophil count decreased [Recovered/Resolved]
  - Mucosal inflammation [Recovered/Resolved]
  - White blood cell count decreased [Not Recovered/Not Resolved]
  - Facial paralysis [Not Recovered/Not Resolved]
  - Facial paralysis [Recovered/Resolved]
  - Hypertension [Recovered/Resolved]
  - Brain stem glioma [Unknown]
  - Alanine aminotransferase increased [Recovered/Resolved]
  - Lymphocyte count decreased [Not Recovered/Not Resolved]
  - Blood creatinine increased [Unknown]
  - Blood cholesterol increased [Recovered/Resolved]
  - Hypophosphataemia [Recovered/Resolved]
  - Myoclonus [Recovered/Resolved]

NARRATIVE: CASE EVENT DATE: 20190111
